FAERS Safety Report 25460543 (Version 2)
Quarter: 2025Q3

REPORT INFORMATION
  Report Type: Spontaneous
  Country: US (occurrence: US)
  Receive Date: 20250620
  Receipt Date: 20250807
  Transmission Date: 20251021
  Serious: Yes (Hospitalization)
  Sender: MYLAN
  Company Number: US-MYLANLABS-2025M1051127

PATIENT
  Age: 82 Year
  Sex: Female

DRUGS (6)
  1. HALDOL [Suspect]
     Active Substance: HALOPERIDOL
     Indication: Agitation
  2. QUETIAPINE [Suspect]
     Active Substance: QUETIAPINE
     Indication: Catatonia
     Dosage: 25 MILLIGRAM, HS (BEDTIME)
  3. QUETIAPINE [Suspect]
     Active Substance: QUETIAPINE
     Indication: Locked-in syndrome
  4. LORAZEPAM [Concomitant]
     Active Substance: LORAZEPAM
     Indication: Catatonia
     Dosage: 0.5 MILLIGRAM, TID (THREE TIMES DAILY)
  5. LORAZEPAM [Concomitant]
     Active Substance: LORAZEPAM
     Dosage: 1 MILLIGRAM, TID (THREE TIMES DAILY)
  6. MEMANTINE [Concomitant]
     Active Substance: MEMANTINE
     Indication: Catatonia
     Dosage: 5 MILLIGRAM, BID

REACTIONS (1)
  - Drug ineffective [Unknown]
